FAERS Safety Report 9556994 (Version 1)
Quarter: 2013Q3

REPORT INFORMATION
  Report Type: Spontaneous
  Country: US (occurrence: None)
  Receive Date: 20130726
  Receipt Date: 20130726
  Transmission Date: 20140515
  Serious: Yes (Hospitalization)
  Sender: FDA-Public Use
  Company Number: UTC-025507

PATIENT
  Age: 44 Year
  Sex: Male
  Weight: 79.5 kg

DRUGS (3)
  1. REMODULIN [Suspect]
     Indication: PULMONARY ARTERIAL HYPERTENSION
     Dosage: 0.16 UG/KG, 1 IN 1 MIN
     Route: 041
     Dates: start: 20061117
  2. TRACLEER [Concomitant]
  3. COUMADIN [Concomitant]

REACTIONS (1)
  - Device related infection [None]
